FAERS Safety Report 6967647-X (Version None)
Quarter: 2010Q3

REPORT INFORMATION
  Report Type: 
  Country: None (occurrence: None)
  Receive Date: 20100907
  Receipt Date: 20100826
  Transmission Date: 20110219
  Serious: Yes (Other)
  Sender: FDA-Public Use
  Company Number: JP-PFIZER INC-2010084796

PATIENT

DRUGS (1)
  1. ZYVOX [Suspect]
     Indication: BACTERIAL DISEASE CARRIER
     Dosage: UNK
     Route: 065

REACTIONS (1)
  - INTERSTITIAL LUNG DISEASE [None]
